FAERS Safety Report 4415828-1 (Version None)
Quarter: 2004Q3

REPORT INFORMATION
  Report Type: 
  Country: None (occurrence: None)
  Receive Date: 20040729
  Receipt Date: 20040716
  Transmission Date: 20050211
  Serious: Yes (Life-Threatening, Disabling)
  Sender: FDA-Public Use
  Company Number: 04H-163-0267684

PATIENT
  Age: 13 Year
  Sex: Female

DRUGS (4)
  1. DIAZEPAM [Suspect]
     Indication: CONVULSION
     Dosage: 5 MG, INTRAVENOUS
     Route: 042
  2. BUPIVACAINE HCL [Suspect]
     Indication: LOCAL ANAESTHESIA
     Dosage: 30 MG, SUBCUTANEOUS
     Route: 058
  3. PETHIDINE HYDROCHLORIDE [Concomitant]
  4. HYDROXYZINE [Concomitant]

REACTIONS (6)
  - AGITATION [None]
  - CIRCULATORY COLLAPSE [None]
  - GRAND MAL CONVULSION [None]
  - IRRITABILITY [None]
  - RETROGRADE AMNESIA [None]
  - VENTRICULAR FIBRILLATION [None]
